FAERS Safety Report 14277762 (Version 5)
Quarter: 2018Q2

REPORT INFORMATION
  Report Type: Spontaneous
  Country: US (occurrence: US)
  Receive Date: 20171212
  Receipt Date: 20180613
  Transmission Date: 20180711
  Serious: Yes (Hospitalization)
  Sender: FDA-Public Use
  Company Number: US-PFIZER INC-2017525048

PATIENT
  Age: 49 Year
  Sex: Female

DRUGS (8)
  1. IBRANCE [Suspect]
     Active Substance: PALBOCICLIB
     Indication: BREAST CANCER METASTATIC
     Dosage: 125 MG, CYCLIC (Q DAY X 21, 7 DAYS OFF)
     Dates: start: 20171128, end: 20180129
  2. IBRANCE [Suspect]
     Active Substance: PALBOCICLIB
     Dosage: UNK (125 - 21 ON 7 OFF)
     Dates: start: 20171130
  3. IBRANCE [Suspect]
     Active Substance: PALBOCICLIB
     Dosage: UNK (7 OFF ADDITION)
     Dates: start: 20180228, end: 20180306
  4. IBRANCE [Suspect]
     Active Substance: PALBOCICLIB
     Dosage: UNK (125 - 21 ON 7 OFF)
     Dates: start: 20171228, end: 20180123
  5. IBRANCE [Suspect]
     Active Substance: PALBOCICLIB
     Dosage: UNK (100 - 21 ON 7 OFF)
     Dates: start: 20180131, end: 20180227
  6. IBRANCE [Suspect]
     Active Substance: PALBOCICLIB
     Dosage: UNK (7 MORE OFF)
     Dates: start: 20180124, end: 20180130
  7. IBRANCE [Suspect]
     Active Substance: PALBOCICLIB
     Dosage: 100 MG, UNK (15 ON 6 OFF )
  8. IBRANCE [Suspect]
     Active Substance: PALBOCICLIB
     Dosage: 100 MG, CYCLIC (Q DAY X21, 7 DAYS OFF)

REACTIONS (11)
  - Neutrophil count decreased [Recovering/Resolving]
  - Dyspnoea [Not Recovered/Not Resolved]
  - Chest discomfort [Not Recovered/Not Resolved]
  - Dizziness [Not Recovered/Not Resolved]
  - Full blood count decreased [Not Recovered/Not Resolved]
  - Insomnia [Unknown]
  - Epistaxis [Recovered/Resolved]
  - Intentional product misuse [Unknown]
  - White blood cell count decreased [Not Recovered/Not Resolved]
  - Pharyngitis streptococcal [Recovered/Resolved]
  - Fatigue [Not Recovered/Not Resolved]

NARRATIVE: CASE EVENT DATE: 20171207
